FAERS Safety Report 23749003 (Version 1)
Quarter: 2024Q2

REPORT INFORMATION
  Report Type: Spontaneous
  Country: AU (occurrence: AU)
  Receive Date: 20240416
  Receipt Date: 20240416
  Transmission Date: 20240716
  Serious: Yes (Other)
  Sender: FDA-Public Use
  Company Number: AU-002147023-NVSC2022AU249556

PATIENT
  Age: 56 Year
  Sex: Male

DRUGS (16)
  1. ATORVASTATIN [Suspect]
     Active Substance: ATORVASTATIN
     Indication: Pain
     Dosage: UNK
     Route: 065
  2. ASPIRIN [Suspect]
     Active Substance: ASPIRIN
     Indication: Pain
     Dosage: UNK
     Route: 065
  3. BISOPROLOL [Suspect]
     Active Substance: BISOPROLOL\BISOPROLOL FUMARATE
     Indication: Pain
     Dosage: UNK
     Route: 065
  4. DAPAGLIFLOZIN PROPANEDIOL [Suspect]
     Active Substance: DAPAGLIFLOZIN PROPANEDIOL
     Indication: Pain
     Dosage: UNK
     Route: 065
  5. DIAZEPAM [Suspect]
     Active Substance: DIAZEPAM
     Indication: Pain
     Dosage: UNK
     Route: 065
  6. DIGOXIN [Suspect]
     Active Substance: DIGOXIN
     Indication: Pain
     Dosage: UNK
     Route: 065
  7. ENTRESTO [Suspect]
     Active Substance: SACUBITRIL\VALSARTAN
     Indication: Pain
     Dosage: UNK
     Route: 065
  8. EPLERENONE [Suspect]
     Active Substance: EPLERENONE
     Indication: Pain
     Dosage: UNK
     Route: 065
  9. FENTANYL [Suspect]
     Active Substance: FENTANYL\FENTANYL CITRATE
     Indication: Pain
     Dosage: UNK
     Route: 065
  10. FLUOXETINE [Suspect]
     Active Substance: FLUOXETINE HYDROCHLORIDE
     Indication: Pain
     Dosage: UNK
     Route: 065
  11. FUROSEMIDE [Suspect]
     Active Substance: FUROSEMIDE
     Indication: Pain
     Dosage: UNK
     Route: 065
  12. INSULIN NOS [Suspect]
     Active Substance: INSULIN NOS
     Indication: Pain
     Dosage: UNK
     Route: 065
  13. OXYCODONE [Suspect]
     Active Substance: OXYCODONE\OXYCODONE HYDROCHLORIDE
     Indication: Pain
     Dosage: UNK
     Route: 065
  14. OZEMPIC [Suspect]
     Active Substance: SEMAGLUTIDE
     Indication: Pain
     Dosage: UNK
     Route: 065
  15. WARFARIN [Suspect]
     Active Substance: WARFARIN
     Indication: Pain
     Dosage: UNK
     Route: 065
  16. ZOPICLONE [Suspect]
     Active Substance: ZOPICLONE
     Indication: Pain
     Dosage: UNK
     Route: 065

REACTIONS (5)
  - Myocardial infarction [Unknown]
  - Mobility decreased [Unknown]
  - Pain [Unknown]
  - Injury [Unknown]
  - Disturbance in attention [Unknown]
